FAERS Safety Report 7957728-6 (Version None)
Quarter: 2011Q4

REPORT INFORMATION
  Report Type: 
  Country: None (occurrence: None)
  Receive Date: 20111205
  Receipt Date: 20111201
  Transmission Date: 20120403
  Serious: Yes (Death, Congenital Anomaly)
  Sender: FDA-Public Use
  Company Number: PHFR2011GB006942

PATIENT

DRUGS (3)
  1. SERTRALINE [Concomitant]
     Route: 064
  2. CARBAMAZEPINE [Suspect]
     Dosage: 800 MG, QD
     Route: 064
  3. FOLIC ACID [Concomitant]
     Route: 064

REACTIONS (2)
  - FOETAL EXPOSURE DURING PREGNANCY [None]
  - GASTROINTESTINAL MALFORMATION [None]
